FAERS Safety Report 8454710-X (Version None)
Quarter: 2012Q2

REPORT INFORMATION
  Report Type: 
  Country: None (occurrence: None)
  Receive Date: 20120615
  Receipt Date: 20120615
  Transmission Date: 20120825
  Serious: Yes (Hospitalization)
  Sender: FDA-Public Use
  Company Number: None

PATIENT

DRUGS (6)
  1. IRINOTECAN HCL [Suspect]
     Indication: NEUROBLASTOMA
     Dosage: 46 MG DAY 1-5 PER CYCLE IV
     Route: 042
     Dates: start: 20110613
  2. ONDANSETRON (ZOFRAN) [Concomitant]
  3. BACTRIM [Concomitant]
  4. CEFOXIME [Concomitant]
  5. VELCADE [Suspect]
     Indication: NEUROBLASTOMA
     Dosage: 1.38 MG DAY 1, 4, 8 PER CYCL  IV
     Route: 042
     Dates: start: 20110613
  6. GABAPENTIN [Concomitant]

REACTIONS (9)
  - HEADACHE [None]
  - COUGH [None]
  - PYREXIA [None]
  - ARTHRALGIA [None]
  - OROPHARYNGEAL PAIN [None]
  - RESPIRATORY RATE INCREASED [None]
  - VIRAL INFECTION [None]
  - TACHYCARDIA [None]
  - BACTERAEMIA [None]
